FAERS Safety Report 9507489 (Version 1)
Quarter: 2013Q3

REPORT INFORMATION
  Report Type: Spontaneous
  Country: US (occurrence: None)
  Receive Date: 20130906
  Receipt Date: 20130906
  Transmission Date: 20140515
  Serious: No
  Sender: FDA-Public Use
  Company Number: None

PATIENT
  Age: 61 Year
  Sex: Male
  Weight: 106.6 kg

DRUGS (2)
  1. SULFAMETHOXAZOLE AND TRIMETHOPRIM DOUBLE STRENGTH [Suspect]
     Indication: STAPHYLOCOCCAL INFECTION
     Dosage: 2 PILLS  TWICE DAILY  TAKEN BY MOUTH
     Route: 048
     Dates: start: 20130812, end: 20130824
  2. METFORMIN 500 MG [Suspect]
     Indication: TYPE 2 DIABETES MELLITUS
     Dosage: 1 PILL  TWICE DAILY  TAKEN BY MOUTH
     Route: 048

REACTIONS (1)
  - Oxygen saturation decreased [None]
